FAERS Safety Report 8846138 (Version 1)
Quarter: 2012Q4

REPORT INFORMATION
  Report Type: 
  Country: US (occurrence: US)
  Receive Date: 20121018
  Receipt Date: 20121018
  Transmission Date: 20130627
  Serious: Yes (Other)
  Sender: FDA-Public Use
  Company Number: US-AMGEN-USASP2012064772

PATIENT
  Age: 67 Year
  Sex: Female

DRUGS (2)
  1. ARANESP [Suspect]
     Indication: RENAL FAILURE CHRONIC
     Dosage: 200 mug, UNK
     Dates: start: 201005, end: 201110
  2. TOPOTECAN [Concomitant]

REACTIONS (1)
  - Ovarian cancer [Unknown]
